FAERS Safety Report 22005449 (Version 1)
Quarter: 2023Q1

REPORT INFORMATION
  Report Type: Spontaneous
  Country: AU (occurrence: AU)
  Receive Date: 20230217
  Receipt Date: 20230217
  Transmission Date: 20230418
  Serious: Yes (Death)
  Sender: FDA-Public Use
  Company Number: AU-Atnahs Limited-ATNAHS20230200457

PATIENT
  Age: 25 Year
  Sex: Female

DRUGS (4)
  1. DIAZEPAM [Suspect]
     Active Substance: DIAZEPAM
     Indication: Product used for unknown indication
  2. ANAFRANIL [Suspect]
     Active Substance: CLOMIPRAMINE HYDROCHLORIDE
     Indication: Product used for unknown indication
  3. KETAMINE [Suspect]
     Active Substance: KETAMINE
     Indication: Product used for unknown indication
  4. LORAZEPAM [Suspect]
     Active Substance: LORAZEPAM
     Indication: Product used for unknown indication

REACTIONS (2)
  - Intentional overdose [Fatal]
  - Toxicity to various agents [Fatal]
